FAERS Safety Report 23845933 (Version 1)
Quarter: 2024Q2

REPORT INFORMATION
  Report Type: Spontaneous
  Country: US (occurrence: US)
  Receive Date: 20240512
  Receipt Date: 20240512
  Transmission Date: 20240717
  Serious: No
  Sender: FDA-Public Use
  Company Number: US-CIPLA LTD.-2024US00798

PATIENT

DRUGS (2)
  1. ALBUTEROL [Suspect]
     Active Substance: ALBUTEROL
     Indication: Dyspnoea
     Dosage: 1 PUFF (90 MCG) EVERY FOUR HOURS OR AS NEEDED
  2. ALBUTEROL [Suspect]
     Active Substance: ALBUTEROL
     Indication: Upper respiratory tract infection

REACTIONS (5)
  - Dyspnoea [Unknown]
  - Off label use [Unknown]
  - Device delivery system issue [Unknown]
  - Device issue [Unknown]
  - Product deposit [Unknown]

NARRATIVE: CASE EVENT DATE: 20240101
